FAERS Safety Report 16106276 (Version 5)
Quarter: 2023Q2

REPORT INFORMATION
  Report Type: Spontaneous
  Country: CA (occurrence: CA)
  Receive Date: 20190322
  Receipt Date: 20230523
  Transmission Date: 20230721
  Serious: Yes (Hospitalization)
  Sender: FDA-Public Use
  Company Number: CA-PFIZER INC-2019117991

PATIENT
  Age: 11 Year
  Sex: Female

DRUGS (5)
  1. GENOTROPIN [Suspect]
     Active Substance: SOMATROPIN
     Indication: Turner^s syndrome
     Dosage: 1 MG, 6X/WEEK
     Route: 058
     Dates: start: 20160118, end: 201902
  2. GENOTROPIN [Suspect]
     Active Substance: SOMATROPIN
     Dosage: 1.2 MG, 6X/WEEK
     Route: 058
     Dates: start: 201902
  3. GENOTROPIN [Suspect]
     Active Substance: SOMATROPIN
     Dosage: 1 DF, 6/WEEKS
     Route: 058
     Dates: end: 202302
  4. IRON [Concomitant]
     Active Substance: IRON
     Dosage: 100 MG, DAILY
  5. VITAMINS [Concomitant]
     Active Substance: VITAMINS
     Dosage: UNK UNK, DAILY

REACTIONS (4)
  - Viral infection [Unknown]
  - Vomiting [Unknown]
  - Scoliosis [Unknown]
  - Product dose omission issue [Unknown]

NARRATIVE: CASE EVENT DATE: 20190313
